FAERS Safety Report 4508877-6 (Version None)
Quarter: 2004Q4

REPORT INFORMATION
  Report Type: 
  Country: None (occurrence: None)
  Receive Date: 20041122
  Receipt Date: 20041122
  Transmission Date: 20050328
  Serious: Yes (Disabling)
  Sender: FDA-Public Use
  Company Number: None

PATIENT
  Age: 37 Year
  Sex: Male
  Weight: 63.5036 kg

DRUGS (1)
  1. CRESTOR [Suspect]
     Indication: BLOOD CHOLESTEROL INCREASED
     Dosage: 10MG   1 TIME DAILY  ORAL
     Route: 048
     Dates: start: 20041108, end: 20041111

REACTIONS (3)
  - MOBILITY DECREASED [None]
  - MUSCULOSKELETAL DISORDER [None]
  - NECK PAIN [None]
